FAERS Safety Report 8337506-9 (Version None)
Quarter: 2012Q2

REPORT INFORMATION
  Report Type: 
  Country: None (occurrence: None)
  Receive Date: 20120504
  Receipt Date: 20110808
  Transmission Date: 20120825
  Serious: No
  Sender: FDA-Public Use
  Company Number: US-TEVA-2011004179

PATIENT
  Sex: Female
  Weight: 81.72 kg

DRUGS (13)
  1. RITALIN [Interacting]
     Indication: FATIGUE
     Dosage: 60 MILLIGRAM;
     Route: 048
     Dates: start: 20050101, end: 20110807
  2. BACLOFEN [Concomitant]
  3. NUVIGIL [Interacting]
     Dosage: 250 MILLIGRAM;
     Route: 048
     Dates: start: 20110501
  4. XANAX [Concomitant]
     Dates: start: 20090101
  5. CYMBALTA [Concomitant]
  6. AMBIEN [Concomitant]
     Dates: start: 20090101
  7. ZANAFLEX [Concomitant]
  8. LASIX [Concomitant]
     Dates: start: 20100101
  9. NUVIGIL [Suspect]
     Indication: FATIGUE
     Dosage: 150 MILLIGRAM;
     Route: 048
     Dates: start: 20110501
  10. CELEBREX [Concomitant]
     Dates: start: 20080101
  11. OXYCONTIN [Concomitant]
     Dates: start: 19980101
  12. ABILIFY [Concomitant]
     Dates: start: 20110501
  13. LEXAPRO [Concomitant]
     Dates: start: 20080101

REACTIONS (5)
  - HYPOAESTHESIA [None]
  - DRUG EFFECT PROLONGED [None]
  - DRUG INEFFECTIVE FOR UNAPPROVED INDICATION [None]
  - DRUG INTERACTION [None]
  - HYPOAESTHESIA ORAL [None]
